FAERS Safety Report 9373990 (Version 1)
Quarter: 2013Q2

REPORT INFORMATION
  Report Type: Spontaneous
  Country: US (occurrence: None)
  Receive Date: 20130627
  Receipt Date: 20130627
  Transmission Date: 20140414
  Serious: Yes (Other)
  Sender: FDA-Public Use
  Company Number: None

PATIENT
  Age: 52 Year
  Sex: Female

DRUGS (1)
  1. EMBREL [Suspect]
     Indication: RHEUMATOID ARTHRITIS
     Dosage: S-Q
     Route: 058
     Dates: start: 20070116, end: 20130626

REACTIONS (1)
  - Upper respiratory tract infection [None]
